FAERS Safety Report 4837211-7 (Version None)
Quarter: 2005Q4

REPORT INFORMATION
  Report Type: 
  Country: None (occurrence: None)
  Receive Date: 20051122
  Receipt Date: 20051116
  Transmission Date: 20060501
  Serious: Yes (Hospitalization)
  Sender: FDA-Public Use
  Company Number: HQWYE592717NOV05

PATIENT
  Age: 66 Year
  Sex: Male
  Weight: 78.09 kg

DRUGS (14)
  1. PROTONIX [Suspect]
     Indication: DYSPEPSIA
     Dosage: 40 MG 1X PER 1 DAY, ORAL
     Route: 048
     Dates: start: 20050722, end: 20050727
  2. PROCARDIA [Concomitant]
  3. TOPROL-XL [Concomitant]
  4. PLAVIX [Concomitant]
  5. PRANDIN [Concomitant]
  6. LIPITOR [Concomitant]
  7. NITROSTAT [Concomitant]
  8. HUMALOG [Concomitant]
  9. ARGININE (ARGININE) [Concomitant]
  10. FUROSEMIDE [Concomitant]
  11. NIACIN [Concomitant]
  12. GLUCOPHAGE [Concomitant]
  13. ZESTRIL [Concomitant]
  14. ACETYLSALICYLIC ACID ENTERIC COATED (ACETYLSALICYLIC ACID) [Concomitant]

REACTIONS (5)
  - ANOREXIA [None]
  - DEHYDRATION [None]
  - DIARRHOEA [None]
  - NEPHRITIS INTERSTITIAL [None]
  - RETCHING [None]
